FAERS Safety Report 23477312 (Version 1)
Quarter: 2024Q1

REPORT INFORMATION
  Report Type: Spontaneous
  Country: FR (occurrence: FR)
  Receive Date: 20240204
  Receipt Date: 20240204
  Transmission Date: 20240410
  Serious: No
  Sender: FDA-Public Use
  Company Number: None

PATIENT
  Age: 76 Year
  Sex: Male
  Weight: 76 kg

DRUGS (14)
  1. CABOMETYX [Suspect]
     Active Substance: CABOZANTINIB S-MALATE
     Indication: Papillary renal cell carcinoma
     Dosage: 40 MG, QD
     Route: 048
     Dates: start: 20221021, end: 20230321
  2. CABOMETYX [Suspect]
     Active Substance: CABOZANTINIB S-MALATE
     Indication: Renal cell carcinoma
     Dosage: 20 MG, QD
     Route: 048
     Dates: start: 20230515, end: 202306
  3. CABOMETYX [Suspect]
     Active Substance: CABOZANTINIB S-MALATE
     Dosage: 20 MG, QD
     Route: 048
     Dates: start: 202306
  4. OPDIVO [Concomitant]
     Active Substance: NIVOLUMAB
     Indication: Renal cell carcinoma
     Dosage: 240 MG, Q2WEEKS, STRENGTH: 10 MG/ML
     Route: 042
     Dates: start: 20221205, end: 20230418
  5. OPDIVO [Concomitant]
     Active Substance: NIVOLUMAB
     Indication: Papillary renal cell carcinoma
  6. KARDEGIC [Suspect]
     Active Substance: ASPIRIN DL-LYSINE
     Indication: Vascular disorder prophylaxis
     Dosage: 75 MG, QD
     Route: 048
  7. KARDEGIC [Suspect]
     Active Substance: ASPIRIN DL-LYSINE
     Dosage: UNK
     Route: 065
     Dates: start: 202307
  8. INNOHEP [Suspect]
     Active Substance: TINZAPARIN SODIUM
     Indication: Haemorrhage
     Dosage: UNK
     Route: 058
     Dates: start: 20230102, end: 20230321
  9. INNOHEP [Suspect]
     Active Substance: TINZAPARIN SODIUM
     Indication: Pulmonary embolism
     Dosage: UNK
     Route: 058
     Dates: start: 20230102, end: 20230531
  10. PREDNISONE [Suspect]
     Active Substance: PREDNISONE
     Indication: Muscular weakness
     Dosage: UNK, QD
     Route: 048
     Dates: start: 20230503
  11. LOVENOX [Suspect]
     Active Substance: ENOXAPARIN SODIUM
     Indication: Vascular disorder prophylaxis
     Dosage: 0.4 ML, QD, 4 000 UI ANTI-XA
     Route: 058
     Dates: start: 20230403
  12. CLOPIDOGREL BISULFATE [Suspect]
     Active Substance: CLOPIDOGREL BISULFATE
     Indication: Vascular disorder prophylaxis
     Dosage: 75 MG, QD
     Route: 048
     Dates: end: 20230709
  13. PREDNISONE [Suspect]
     Active Substance: PREDNISONE
     Indication: Myasthenia gravis
     Dosage: UNK, QD
     Route: 048
     Dates: start: 20230503
  14. ASPIRIN\CLOPIDOGREL [Suspect]
     Active Substance: ASPIRIN\CLOPIDOGREL
     Indication: Vascular disorder prophylaxis
     Dosage: 75 MG, QD
     Route: 048
     Dates: start: 20230709

REACTIONS (4)
  - Subcutaneous haematoma [Recovering/Resolving]
  - Oedema peripheral [Unknown]
  - Haematoma muscle [Recovered/Resolved]
  - Haematoma [Recovering/Resolving]

NARRATIVE: CASE EVENT DATE: 20230321
